FAERS Safety Report 22590110 (Version 1)
Quarter: 2023Q2

REPORT INFORMATION
  Report Type: Spontaneous
  Country: US (occurrence: None)
  Receive Date: 20230609
  Receipt Date: 20230609
  Transmission Date: 20230721
  Serious: Yes (Other)
  Sender: FDA-Public Use
  Company Number: None

PATIENT
  Age: 93 Year
  Sex: Female
  Weight: 49.5 kg

DRUGS (1)
  1. OLANZAPINE [Suspect]
     Active Substance: OLANZAPINE
     Indication: Dementia
     Dosage: FREQUENCY : AS NEEDED;?
     Route: 048
     Dates: start: 20180301, end: 20180501

REACTIONS (4)
  - Agitation [None]
  - Hallucination, visual [None]
  - Therapy cessation [None]
  - Violence-related symptom [None]

NARRATIVE: CASE EVENT DATE: 20180501
